FAERS Safety Report 4290404-2 (Version None)
Quarter: 2004Q1

REPORT INFORMATION
  Report Type: 
  Country: None (occurrence: None)
  Receive Date: 20040209
  Receipt Date: 20040202
  Transmission Date: 20041129
  Serious: Yes (Other)
  Sender: FDA-Public Use
  Company Number: 2004197166US

PATIENT
  Age: 54 Year
  Sex: Male
  Weight: 98.9 kg

DRUGS (5)
  1. BEXTRA [Suspect]
  2. ALTOCOR [Suspect]
     Dosage: 60 MG
  3. ASPIRIN [Concomitant]
  4. POTASSIUM CHLORIDE [Concomitant]
  5. HYDROCHLOROTHIAZIDE [Concomitant]

REACTIONS (5)
  - BLOOD CHOLESTEROL INCREASED [None]
  - BLOOD TRIGLYCERIDES INCREASED [None]
  - DRUG INTERACTION [None]
  - HEPATIC CIRRHOSIS [None]
  - HEPATOMEGALY [None]
